FAERS Safety Report 9413656 (Version 2)
Quarter: 2013Q3

REPORT INFORMATION
  Report Type: Report from Study
  Country: JP (occurrence: JP)
  Receive Date: 20130722
  Receipt Date: 20130809
  Transmission Date: 20140515
  Serious: Yes (Hospitalization)
  Sender: FDA-Public Use
  Company Number: JP-GILEAD-2012-0064605

PATIENT
  Age: 45 Year
  Sex: Male

DRUGS (15)
  1. EMTRICITABINE/TENOFOVIR DISOPROXIL FUMARATE [Suspect]
     Indication: HIV INFECTION
     Dosage: 1 DF, QD
     Route: 048
     Dates: start: 20050524, end: 20130108
  2. STOCRIN [Suspect]
     Indication: HIV INFECTION
     Dosage: 600 MG, QD
     Route: 048
     Dates: start: 20050425, end: 20080713
  3. ISENTRESS [Suspect]
     Indication: HIV INFECTION
     Dosage: 800 MG, QD
     Route: 048
     Dates: start: 20080714
  4. LEXIVA [Suspect]
     Indication: HIV INFECTION
     Dosage: 700 MG, BID
     Route: 048
     Dates: start: 20080917, end: 20130326
  5. NORVIR [Suspect]
     Indication: HIV INFECTION
     Dosage: 100 MG, QD
     Route: 048
     Dates: start: 20110520, end: 20130326
  6. NORVIR [Concomitant]
     Indication: HIV INFECTION
     Dosage: 100 MG, QD
     Route: 048
     Dates: start: 20080714
  7. KOGENATE [Concomitant]
     Indication: FACTOR VIII DEFICIENCY
     Dosage: 1000 UNK, UNK
     Route: 042
     Dates: start: 20050412
  8. PEGINTRON                          /01543001/ [Concomitant]
     Indication: HEPATITIS C
     Dosage: 100 ?G, QD
     Route: 065
     Dates: start: 20060401, end: 20060429
  9. RIBAVIRIN [Concomitant]
     Indication: HEPATITIS C
     Dosage: 1 DF, BID
     Route: 048
     Dates: start: 20060401, end: 20060505
  10. PARIET [Concomitant]
     Indication: GASTRITIS
     Dosage: 20 MG, QD
     Route: 048
     Dates: start: 20070124, end: 20080323
  11. MINOFIT [Concomitant]
     Indication: HEPATITIS C
     Dosage: 60 UNK, UNK
     Route: 042
     Dates: start: 20070418
  12. LACTULOSE [Concomitant]
     Indication: HEPATIC CIRRHOSIS
     Dosage: 30 ML, BID
     Route: 048
     Dates: start: 20080401
  13. SPIRONOLACTONE [Concomitant]
     Indication: HEPATIC CIRRHOSIS
     Dosage: 25 MG, QD
     Route: 048
     Dates: start: 20080401
  14. NEO-MINOPHAGEN C [Concomitant]
     Indication: HEPATIC CIRRHOSIS
     Dosage: 60 UNK, UNK
     Route: 042
     Dates: start: 20080401
  15. TAKEPRON [Concomitant]
     Indication: GASTRITIS
     Dosage: 30 MG, QD
     Route: 048
     Dates: start: 20080423

REACTIONS (3)
  - Hyperuricaemia [Not Recovered/Not Resolved]
  - Gastrointestinal haemorrhage [Recovering/Resolving]
  - Renal impairment [Not Recovered/Not Resolved]
